FAERS Safety Report 11801881 (Version 4)
Quarter: 2016Q1

REPORT INFORMATION
  Report Type: Spontaneous
  Country: SE (occurrence: SE)
  Receive Date: 20151204
  Receipt Date: 20160205
  Transmission Date: 20160525
  Serious: Yes (Hospitalization, Other)
  Sender: FDA-Public Use
  Company Number: SE-ACTAVIS-2015-26137

PATIENT
  Age: 27 Year
  Sex: Female

DRUGS (9)
  1. OXALIPLATIN (UNKNOWN) [Suspect]
     Active Substance: OXALIPLATIN
     Indication: ADENOCARCINOMA OF COLON
     Dosage: 150 MG, CYCLICAL
     Route: 065
     Dates: start: 20130214
  2. CALCIUM FOLINATE [Suspect]
     Active Substance: LEUCOVORIN CALCIUM
     Indication: ADENOCARCINOMA OF COLON
     Dosage: 110 MG, CYCLICAL
     Route: 065
     Dates: start: 20130214
  3. OXALIPLATIN (UNKNOWN) [Suspect]
     Active Substance: OXALIPLATIN
     Dosage: 120 MG, CYCLICAL
     Route: 065
     Dates: start: 20130422
  4. FLUOROURACIL. [Suspect]
     Active Substance: FLUOROURACIL
     Dosage: 900 MG, CYCLICAL
     Route: 065
     Dates: start: 20130326
  5. OXALIPLATIN (UNKNOWN) [Suspect]
     Active Substance: OXALIPLATIN
     Dosage: 140 MG, CYCLICAL
     Route: 065
     Dates: start: 20130426
  6. FLUOROURACIL. [Suspect]
     Active Substance: FLUOROURACIL
     Indication: ADENOCARCINOMA OF COLON
     Dosage: 950 MG, CYCLICAL
     Route: 065
     Dates: start: 20130214
  7. CALCIUM FOLINATE [Suspect]
     Active Substance: LEUCOVORIN CALCIUM
     Dosage: 100 MG, CYCLICAL
     Route: 065
     Dates: start: 20130326
  8. CALCIUM FOLINATE [Suspect]
     Active Substance: LEUCOVORIN CALCIUM
     Dosage: 100 MG, CYCLICAL
     Route: 065
     Dates: start: 20130422
  9. FLUOROURACIL. [Suspect]
     Active Substance: FLUOROURACIL
     Dosage: 720 MG, CYCLICAL
     Route: 065
     Dates: start: 20130424

REACTIONS (6)
  - Febrile neutropenia [Recovered/Resolved]
  - Pulmonary embolism [Recovered/Resolved]
  - Thrombocytosis [Recovered/Resolved]
  - Infection [Recovered/Resolved]
  - Anaemia [Recovered/Resolved]
  - Hypoalbuminaemia [Recovered/Resolved]

NARRATIVE: CASE EVENT DATE: 20130226
